FAERS Safety Report 7719772-3 (Version None)
Quarter: 2011Q3

REPORT INFORMATION
  Report Type: 
  Country: None (occurrence: None)
  Receive Date: 20110831
  Receipt Date: 20110823
  Transmission Date: 20111222
  Serious: Yes (Hospitalization)
  Sender: FDA-Public Use
  Company Number: US-BIOGENIDEC-2011BI027918

PATIENT
  Age: 29 Year
  Sex: Male

DRUGS (1)
  1. AVONEX [Suspect]
     Indication: MULTIPLE SCLEROSIS
     Route: 030
     Dates: start: 20110714

REACTIONS (4)
  - PYREXIA [None]
  - TOXICITY TO VARIOUS AGENTS [None]
  - MULTIPLE SCLEROSIS RELAPSE [None]
  - DEEP VEIN THROMBOSIS [None]
